FAERS Safety Report 4284061-9 (Version None)
Quarter: 2004Q1

REPORT INFORMATION
  Report Type: 
  Country: None (occurrence: None)
  Receive Date: 20040130
  Receipt Date: 20040120
  Transmission Date: 20041129
  Serious: Yes (Hospitalization)
  Sender: FDA-Public Use
  Company Number: ZONI001300

PATIENT
  Age: 42 Year
  Sex: Female

DRUGS (3)
  1. ZONEGRAN [Suspect]
     Indication: BIPOLAR DISORDER
     Dosage: 600 MG DAILY ORAL
     Route: 048
     Dates: start: 20031201, end: 20031201
  2. CLONAZEPAM [Concomitant]
  3. ENALAPRIL [Concomitant]

REACTIONS (3)
  - DEPRESSION [None]
  - HYPOTHYROIDISM [None]
  - RASH [None]
